FAERS Safety Report 5623737-5 (Version None)
Quarter: 2008Q1

REPORT INFORMATION
  Report Type: 
  Country: None (occurrence: None)
  Receive Date: 20080207
  Receipt Date: 20080107
  Transmission Date: 20080703
  Serious: Yes (Death)
  Sender: FDA-Public Use
  Company Number: IMP_03462_2008

PATIENT
  Age: 37 Year
  Sex: Male

DRUGS (4)
  1. OXYCODONE HCL [Suspect]
     Indication: DRUG USE FOR UNKNOWN INDICATION
     Dosage: DF, ORAL
     Route: 048
  2. BENZODIAZEPINE DERIVATIVES [Suspect]
     Indication: DRUG USE FOR UNKNOWN INDICATION
     Dosage: DF, ORAL
     Route: 048
  3. METHADONE HCL [Suspect]
     Indication: DRUG USE FOR UNKNOWN INDICATION
     Dosage: DF, ORAL
     Route: 048
  4. OXYMORPHONE HCL [Suspect]
     Indication: DRUG USE FOR UNKNOWN INDICATION
     Dosage: DF, ORAL
     Route: 048

REACTIONS (1)
  - DRUG TOXICITY [None]
